FAERS Safety Report 7374372 (Version 3)
Quarter: 2013Q3

REPORT INFORMATION
  Report Type: Spontaneous
  Country: US (occurrence: US)
  Receive Date: 20100503
  Receipt Date: 20130712
  Transmission Date: 20140515
  Serious: No
  Sender: FDA-Public Use
  Company Number: US-ASTRAZENECA-2009SE13690

PATIENT
  Age: 87 Year
  Sex: Male
  Weight: 59 kg

DRUGS (15)
  1. NEXIUM [Suspect]
     Indication: GASTROOESOPHAGEAL REFLUX DISEASE
     Route: 048
     Dates: start: 2004, end: 200909
  2. NEXIUM [Suspect]
     Indication: GASTROOESOPHAGEAL REFLUX DISEASE
     Route: 048
     Dates: start: 2007
  3. NEXIUM [Suspect]
     Indication: GASTROOESOPHAGEAL REFLUX DISEASE
     Route: 048
     Dates: start: 200909, end: 200909
  4. NEXIUM [Suspect]
     Indication: GASTROOESOPHAGEAL REFLUX DISEASE
     Route: 048
     Dates: start: 200909
  5. NEXIUM [Suspect]
     Indication: GASTROOESOPHAGEAL REFLUX DISEASE
     Route: 048
  6. NEXIUM [Suspect]
     Indication: GASTROOESOPHAGEAL REFLUX DISEASE
     Route: 048
     Dates: start: 2008
  7. NEXIUM [Suspect]
     Indication: GASTROOESOPHAGEAL REFLUX DISEASE
     Route: 048
     Dates: start: 201306
  8. PRILOSEC [Suspect]
     Indication: GASTROOESOPHAGEAL REFLUX DISEASE
     Route: 048
     Dates: start: 2007, end: 2008
  9. PRILOSEC [Suspect]
     Indication: GASTROOESOPHAGEAL REFLUX DISEASE
     Route: 048
     Dates: start: 2008, end: 2008
  10. BABY ASPIRIN [Concomitant]
     Indication: CARDIAC DISORDER
  11. PPI [Concomitant]
  12. CENTRUM VITAMIN [Concomitant]
  13. ASA [Concomitant]
  14. MULTIVITAMIN [Concomitant]
  15. PREDNISONE [Concomitant]

REACTIONS (13)
  - Chest pain [Unknown]
  - Contusion [Unknown]
  - Cough [Recovering/Resolving]
  - Tremor [Unknown]
  - Increased tendency to bruise [Unknown]
  - Anaemia [Unknown]
  - Polymyalgia rheumatica [Unknown]
  - Gastrooesophageal reflux disease [Unknown]
  - Osteopenia [Not Recovered/Not Resolved]
  - Weight decreased [Not Recovered/Not Resolved]
  - Pneumonia [Recovered/Resolved]
  - Body height decreased [Unknown]
  - Intentional drug misuse [Unknown]
